FAERS Safety Report 8230783-4 (Version None)
Quarter: 2012Q1

REPORT INFORMATION
  Report Type: 
  Country: None (occurrence: None)
  Receive Date: 20120323
  Receipt Date: 20120320
  Transmission Date: 20120608
  Serious: Yes (Other)
  Sender: FDA-Public Use
  Company Number: US-PFIZER INC-2012073571

PATIENT
  Sex: Female
  Weight: 81.633 kg

DRUGS (1)
  1. PREMARIN [Suspect]
     Indication: HORMONE REPLACEMENT THERAPY
     Dosage: 1.25 MG, DAILY
     Route: 048
     Dates: start: 19950101

REACTIONS (4)
  - STAPHYLOCOCCAL INFECTION [None]
  - POLYARTHRITIS [None]
  - SURGERY [None]
  - DRUG HYPERSENSITIVITY [None]
